FAERS Safety Report 16525641 (Version 2)
Quarter: 2019Q3

REPORT INFORMATION
  Report Type: Report from Study
  Country: US (occurrence: US)
  Receive Date: 20190703
  Receipt Date: 20190801
  Transmission Date: 20191004
  Serious: Yes (Other)
  Sender: FDA-Public Use
  Company Number: US-SA-2019SA174924

PATIENT
  Age: 49 Year
  Sex: Male

DRUGS (1)
  1. ALIROCUMAB [Suspect]
     Active Substance: ALIROCUMAB
     Indication: BLOOD CHOLESTEROL INCREASED
     Dosage: 150 MG, QOW
     Dates: start: 20190612, end: 2019

REACTIONS (6)
  - Malaise [Unknown]
  - Constipation [Unknown]
  - Rocky mountain spotted fever [Unknown]
  - Arthropod bite [Unknown]
  - Pain [Unknown]
  - Nausea [Not Recovered/Not Resolved]

NARRATIVE: CASE EVENT DATE: 20190613
